FAERS Safety Report 19686210 (Version 2)
Quarter: 2021Q3

REPORT INFORMATION
  Report Type: Spontaneous
  Country: US (occurrence: US)
  Receive Date: 20210811
  Receipt Date: 20210825
  Transmission Date: 20211014
  Serious: No
  Sender: FDA-Public Use
  Company Number: US-AMGEN-USASP2021122937

PATIENT
  Age: 44 Year
  Sex: Female

DRUGS (7)
  1. MELOXICAM. [Concomitant]
     Active Substance: MELOXICAM
  2. METHOTREXATE. [Concomitant]
     Active Substance: METHOTREXATE
  3. OTEZLA [Suspect]
     Active Substance: APREMILAST
     Indication: PSORIATIC ARTHROPATHY
     Dosage: 30 MILLIGRAM, BID
     Route: 048
     Dates: start: 20210518
  4. FOLIC ACID. [Concomitant]
     Active Substance: FOLIC ACID
  5. CELECOXIB. [Concomitant]
     Active Substance: CELECOXIB
  6. NITROFURANTIN [Concomitant]
     Active Substance: NITROFURANTOIN
  7. APAP/CODEINE [CODEINE;PARACETAMOL] [Concomitant]
     Active Substance: ACETAMINOPHEN\CODEINE PHOSPHATE

REACTIONS (3)
  - Arthralgia [Not Recovered/Not Resolved]
  - Fatigue [Not Recovered/Not Resolved]
  - Therapy non-responder [Not Recovered/Not Resolved]

NARRATIVE: CASE EVENT DATE: 20210807
